FAERS Safety Report 9464633 (Version 1)
Quarter: 2013Q3

REPORT INFORMATION
  Report Type: Spontaneous
  Country: US (occurrence: US)
  Receive Date: 20130819
  Receipt Date: 20130819
  Transmission Date: 20140515
  Serious: Yes (Other)
  Sender: FDA-Public Use
  Company Number: US-PFIZER INC-2013238244

PATIENT
  Sex: Male

DRUGS (1)
  1. FLECTOR [Suspect]
     Dosage: UNK
     Dates: start: 201308

REACTIONS (3)
  - Anaphylactic reaction [Unknown]
  - Dyspnoea [Unknown]
  - Pharyngeal oedema [Unknown]
